FAERS Safety Report 11552632 (Version 1)
Quarter: 2015Q3

REPORT INFORMATION
  Report Type: Spontaneous
  Country: US (occurrence: None)
  Receive Date: 20150924
  Receipt Date: 20150924
  Transmission Date: 20151125
  Serious: Yes (Death)
  Sender: FDA-Public Use
  Company Number: None

PATIENT
  Age: 24 Year
  Sex: Male

DRUGS (2)
  1. EXJADE [Suspect]
     Active Substance: DEFERASIROX
     Indication: IRON METABOLISM DISORDER
     Dosage: 3 TABS
     Route: 048
     Dates: start: 20140929, end: 20150831
  2. EXJADE [Suspect]
     Active Substance: DEFERASIROX
     Indication: SICKLE CELL ANAEMIA
     Dosage: 3 TABS
     Route: 048
     Dates: start: 20140929, end: 20150831

REACTIONS (1)
  - Death [None]

NARRATIVE: CASE EVENT DATE: 20150831
